FAERS Safety Report 14920033 (Version 1)
Quarter: 2018Q2

REPORT INFORMATION
  Report Type: Report from Study
  Country: US (occurrence: US)
  Receive Date: 20180521
  Receipt Date: 20180521
  Transmission Date: 20180711
  Serious: Yes (Other)
  Sender: FDA-Public Use
  Company Number: US-JNJFOC-20180523294

PATIENT
  Age: 87 Year
  Sex: Male

DRUGS (17)
  1. CAPTOPRIL. [Concomitant]
     Active Substance: CAPTOPRIL
  2. LEVOTHYROXINE. [Concomitant]
     Active Substance: LEVOTHYROXINE
  3. VITAMIN D [Concomitant]
     Active Substance: CHOLECALCIFEROL
  4. CALCIUM [Concomitant]
     Active Substance: CALCIUM
  5. IMBRUVICA [Suspect]
     Active Substance: IBRUTINIB
     Indication: CHRONIC LYMPHOCYTIC LEUKAEMIA
     Dates: start: 20170622
  6. IMBRUVICA [Suspect]
     Active Substance: IBRUTINIB
     Indication: CHRONIC LYMPHOCYTIC LEUKAEMIA
     Route: 048
     Dates: start: 20180419
  7. SIMVASTATIN. [Concomitant]
     Active Substance: SIMVASTATIN
  8. ZYRTEC [Concomitant]
     Active Substance: CETIRIZINE HYDROCHLORIDE
  9. GLIPIZIDE. [Concomitant]
     Active Substance: GLIPIZIDE
  10. ALLIUM SATIVUM [Concomitant]
  11. MAGNESIUM [Concomitant]
     Active Substance: MAGNESIUM
  12. LANTUS [Concomitant]
     Active Substance: INSULIN GLARGINE
  13. CENTRUM SILVER [Concomitant]
     Active Substance: MINERALS\VITAMINS
  14. BETA CAROTENE [Concomitant]
  15. CITALOPRAM [Concomitant]
     Active Substance: CITALOPRAM HYDROBROMIDE
  16. VITAMIN C [Concomitant]
     Active Substance: ASCORBIC ACID
  17. VITAMIN B NOS [Concomitant]
     Active Substance: VITAMIN B

REACTIONS (8)
  - Face injury [Recovered/Resolved]
  - Incorrect dose administered [Unknown]
  - Skin haemorrhage [Unknown]
  - Skin atrophy [Unknown]
  - Off label use [Unknown]
  - Skin abrasion [Recovered/Resolved]
  - Contusion [Recovering/Resolving]
  - Fall [Recovered/Resolved]

NARRATIVE: CASE EVENT DATE: 201804
